FAERS Safety Report 20762360 (Version 5)
Quarter: 2023Q2

REPORT INFORMATION
  Report Type: Report from Study
  Country: JP (occurrence: JP)
  Receive Date: 20220428
  Receipt Date: 20230411
  Transmission Date: 20230722
  Serious: Yes (Other)
  Sender: FDA-Public Use
  Company Number: JP-ASTELLAS-2022JP006122

PATIENT
  Age: 63 Year
  Sex: Male
  Weight: 55 kg

DRUGS (7)
  1. ENFORTUMAB VEDOTIN [Suspect]
     Active Substance: ENFORTUMAB VEDOTIN
     Indication: Transitional cell carcinoma
     Dosage: 1.25 MG/KG, ONCE A WEEK X 3 TIMES AND INTERRUPTED IN THE 4TH WEEK
     Route: 041
     Dates: start: 20220111, end: 20220125
  2. ENFORTUMAB VEDOTIN [Suspect]
     Active Substance: ENFORTUMAB VEDOTIN
     Dosage: 1.25 MG/KG, ONCE A WEEK X 3 TIMES AND INTERRUPTED IN THE 4TH WEEK
     Route: 041
     Dates: start: 20220407, end: 20220421
  3. ENFORTUMAB VEDOTIN [Suspect]
     Active Substance: ENFORTUMAB VEDOTIN
     Dosage: 1.25 MG/KG, ONCE A WEEK X 3 TIMES AND INTERRUPTED IN THE 4TH WEEK
     Route: 041
     Dates: start: 20220616, end: 20220630
  4. ENFORTUMAB VEDOTIN [Suspect]
     Active Substance: ENFORTUMAB VEDOTIN
     Route: 041
     Dates: start: 20220728, end: 20220812
  5. ENFORTUMAB VEDOTIN [Suspect]
     Active Substance: ENFORTUMAB VEDOTIN
     Dosage: 1.00 MG/KG, ONCE A WEEK X 3 TIMES AND INTERRUPTED IN THE 4TH WEEK
     Route: 041
     Dates: start: 20220922, end: 20221006
  6. ENFORTUMAB VEDOTIN [Suspect]
     Active Substance: ENFORTUMAB VEDOTIN
     Dosage: 1.00 MG/KG, UNKNOWN FREQ.
     Route: 041
     Dates: start: 20221025, end: 20221108
  7. ENFORTUMAB VEDOTIN [Suspect]
     Active Substance: ENFORTUMAB VEDOTIN
     Dosage: 1.00 MG/KG, UNKNOWN FREQ.
     Route: 041
     Dates: start: 20221201

REACTIONS (5)
  - Ileus [Recovered/Resolved]
  - Hepatic function abnormal [Recovered/Resolved]
  - Rash [Recovered/Resolved]
  - Pruritus [Recovered/Resolved]
  - Alopecia [Recovered/Resolved]

NARRATIVE: CASE EVENT DATE: 20220101
